FAERS Safety Report 17579365 (Version 1)
Quarter: 2020Q1

REPORT INFORMATION
  Report Type: Spontaneous
  Country: US (occurrence: US)
  Receive Date: 20200325
  Receipt Date: 20200325
  Transmission Date: 20200409
  Serious: No
  Sender: FDA-Public Use
  Company Number: US-ALLERGAN-1949371US

PATIENT
  Age: 67 Year
  Sex: Female

DRUGS (3)
  1. OXYBUTYNIN PCH - BP [Suspect]
     Active Substance: OXYBUTYNIN
     Indication: PRODUCT USED FOR UNKNOWN INDICATION
     Dosage: UNK
     Route: 065
  2. MYRBETRIQ [Suspect]
     Active Substance: MIRABEGRON
     Indication: PRODUCT USED FOR UNKNOWN INDICATION
     Dosage: 37.5 MG, QD
     Route: 065
  3. MYRBETRIQ [Suspect]
     Active Substance: MIRABEGRON
     Dosage: 25 MG, QD
     Route: 065

REACTIONS (10)
  - Drug intolerance [Unknown]
  - Wrong technique in product usage process [Unknown]
  - Dyslalia [Unknown]
  - Nasopharyngitis [Unknown]
  - Throat irritation [Unknown]
  - Product prescribing issue [Unknown]
  - Aptyalism [Unknown]
  - Rhinorrhoea [Unknown]
  - Influenza [Unknown]
  - Therapeutic product effect incomplete [Unknown]
